FAERS Safety Report 9118343 (Version 1)
Quarter: 2013Q1

REPORT INFORMATION
  Report Type: Spontaneous
  Country: IT (occurrence: None)
  Receive Date: 20130128
  Receipt Date: 20130128
  Transmission Date: 20140127
  Serious: Yes (Other)
  Sender: FDA-Public Use
  Company Number: AUR-APL-2013-00924

PATIENT
  Age: 76 Year
  Sex: Male

DRUGS (2)
  1. AMOXICILLIN (AMOXICILLIN) [Suspect]
     Indication: BRONCHITIS
     Route: 048
     Dates: start: 20121026, end: 20121101
  2. RYTMONORM (PROPAFENONE HYDROCHLORIDE) [Concomitant]

REACTIONS (3)
  - Bronchitis [None]
  - Condition aggravated [None]
  - Tachyarrhythmia [None]
